FAERS Safety Report 18453334 (Version 2)
Quarter: 2020Q4

REPORT INFORMATION
  Report Type: Spontaneous
  Country: US (occurrence: US)
  Receive Date: 20201102
  Receipt Date: 20201105
  Transmission Date: 20210114
  Serious: Yes (Hospitalization, Other)
  Sender: FDA-Public Use
  Company Number: US-PFIZER INC-2020413212

PATIENT
  Age: 12 Year
  Sex: Male

DRUGS (8)
  1. CLONIDINE. [Suspect]
     Active Substance: CLONIDINE
     Dosage: 0.3 MG, DAILY
  2. CYPROHEPTADINE. [Suspect]
     Active Substance: CYPROHEPTADINE
     Indication: INCREASED APPETITE
     Dosage: 12 MG
  3. FLUOXETINE [Suspect]
     Active Substance: FLUOXETINE HYDROCHLORIDE
     Dosage: 20 MG
  4. AMFETAMINE/DEXAMFETAMINE [Concomitant]
     Active Substance: AMPHETAMINE SULFATE\DEXTROAMPHETAMINE
     Dosage: 30 MG, DAILY
  5. LORAZEPAM. [Concomitant]
     Active Substance: LORAZEPAM
     Indication: AGITATION
     Dosage: UNK
     Route: 042
  6. ONDANSETRON [Suspect]
     Active Substance: ONDANSETRON
     Dosage: UNK
     Route: 042
  7. ARIPIPRAZOLE. [Suspect]
     Active Substance: ARIPIPRAZOLE
     Dosage: 2.5 MG, DAILY
  8. CLONIDINE. [Suspect]
     Active Substance: CLONIDINE
     Dosage: 0.2 MG, 2X/DAY

REACTIONS (2)
  - Neuroleptic malignant syndrome [Recovering/Resolving]
  - Serotonin syndrome [Recovering/Resolving]
